FAERS Safety Report 18832609 (Version 1)
Quarter: 2021Q1

REPORT INFORMATION
  Report Type: Spontaneous
  Country: IT (occurrence: IT)
  Receive Date: 20210201
  Receipt Date: 20210201
  Transmission Date: 20210419
  Serious: Yes (Hospitalization)
  Sender: FDA-Public Use
  Company Number: IT-BAXTER-2021BAX001836

PATIENT
  Age: 72 Year
  Sex: Male
  Weight: 68 kg

DRUGS (1)
  1. HOLOXAN [Suspect]
     Active Substance: IFOSFAMIDE
     Indication: DEDIFFERENTIATED LIPOSARCOMA
     Route: 041
     Dates: start: 20210104, end: 20210106

REACTIONS (3)
  - Psychomotor hyperactivity [Not Recovered/Not Resolved]
  - Encephalopathy [Not Recovered/Not Resolved]
  - Delirium [Not Recovered/Not Resolved]

NARRATIVE: CASE EVENT DATE: 20210106
